FAERS Safety Report 10527734 (Version 1)
Quarter: 2014Q4

REPORT INFORMATION
  Report Type: Spontaneous
  Country: US (occurrence: None)
  Receive Date: 20141017
  Receipt Date: 20141017
  Transmission Date: 20150528
  Serious: Yes (Hospitalization)
  Sender: FDA-Public Use
  Company Number: None

PATIENT
  Age: 63 Year
  Sex: Male
  Weight: 74 kg

DRUGS (2)
  1. IBUPROFEN. [Suspect]
     Active Substance: IBUPROFEN
     Indication: HEADACHE
     Route: 048
     Dates: start: 20140901, end: 20140914
  2. ASPIRIN. [Suspect]
     Active Substance: ASPIRIN
     Indication: THROMBOSIS PROPHYLAXIS
     Route: 048
     Dates: start: 20100202, end: 20140914

REACTIONS (11)
  - Duodenal ulcer [None]
  - Dyspnoea [None]
  - Palpitations [None]
  - Sinus tachycardia [None]
  - Faeces discoloured [None]
  - Gastric haemorrhage [None]
  - Electrocardiogram ST segment depression [None]
  - Hiatus hernia [None]
  - Nausea [None]
  - Dizziness [None]
  - Anaemia [None]

NARRATIVE: CASE EVENT DATE: 20140914
